FAERS Safety Report 9085963 (Version 1)
Quarter: 2013Q1

REPORT INFORMATION
  Report Type: Spontaneous
  Country: US (occurrence: US)
  Receive Date: 20130131
  Receipt Date: 20130131
  Transmission Date: 20140127
  Serious: Yes (Hospitalization)
  Sender: FDA-Public Use
  Company Number: US-MPIJNJ-2013-00061

PATIENT
  Age: 65 Year
  Sex: Female
  Weight: 107.48 kg

DRUGS (17)
  1. VELCADE [Suspect]
     Indication: PLASMA CELL MYELOMA
     Dosage: 2.6 MG/M2, 1/WEEK
     Route: 058
     Dates: start: 20121214, end: 20121221
  2. METFORMIN [Concomitant]
     Indication: DIABETES MELLITUS
  3. ACYCLOVIR                          /00587301/ [Concomitant]
     Indication: PRODUCT USED FOR UNKNOWN INDICATION
  4. ASPIRIN [Concomitant]
     Indication: PRODUCT USED FOR UNKNOWN INDICATION
  5. ACTOS                              /01460201/ [Concomitant]
     Indication: PRODUCT USED FOR UNKNOWN INDICATION
     Dosage: 30 MG, QD
     Route: 048
  6. ALPRAZOLAM [Concomitant]
     Indication: ANXIETY
     Dosage: 0.25 MG, PRN
     Route: 048
  7. CYCLOBENZAPRINE [Concomitant]
     Indication: PRODUCT USED FOR UNKNOWN INDICATION
     Dosage: 10 MG, PRN
     Route: 048
  8. DEXAMETHASONE [Concomitant]
     Indication: PRODUCT USED FOR UNKNOWN INDICATION
  9. IMDUR [Concomitant]
     Indication: PRODUCT USED FOR UNKNOWN INDICATION
     Dosage: 60 MG, UNK
  10. IRON [Concomitant]
     Indication: PRODUCT USED FOR UNKNOWN INDICATION
     Dosage: UNK, QD
  11. LASIX                              /00032601/ [Concomitant]
     Indication: PRODUCT USED FOR UNKNOWN INDICATION
     Dosage: 40 MG, UNK
     Route: 048
  12. LISINOPRIL [Concomitant]
     Indication: PRODUCT USED FOR UNKNOWN INDICATION
     Dosage: 10 MG, QD
  13. METOPROLOL [Concomitant]
     Indication: PRODUCT USED FOR UNKNOWN INDICATION
     Dosage: 100 MG, BID
     Route: 048
  14. CHLORPROMAZINE [Concomitant]
     Indication: PRODUCT USED FOR UNKNOWN INDICATION
     Dosage: 10 MG, Q4HR
  15. PROTONIX                           /01263201/ [Concomitant]
     Indication: PRODUCT USED FOR UNKNOWN INDICATION
     Dosage: 40 MG, QD
     Route: 048
  16. ZOCOR [Concomitant]
     Indication: PRODUCT USED FOR UNKNOWN INDICATION
     Dosage: 80 MG, QD
     Route: 048
  17. TRAMADOL [Concomitant]
     Indication: PAIN
     Dosage: 50 MG, PRN
     Route: 048

REACTIONS (4)
  - Epilepsy [Recovered/Resolved]
  - Iron deficiency anaemia [Unknown]
  - Acute coronary syndrome [Unknown]
  - Renal failure [Recovered/Resolved]
